FAERS Safety Report 11447830 (Version 1)
Quarter: 2015Q3

REPORT INFORMATION
  Report Type: Spontaneous
  Country: US (occurrence: US)
  Receive Date: 20150831
  Receipt Date: 20150831
  Transmission Date: 20151125
  Serious: No
  Sender: FDA-Public Use
  Company Number: US-ELI_LILLY_AND_COMPANY-US200904004197

PATIENT
  Sex: Female

DRUGS (3)
  1. TYLENOL 8 HR [Concomitant]
     Active Substance: ACETAMINOPHEN
  2. ATIVAN [Concomitant]
     Active Substance: LORAZEPAM
     Indication: SLEEP DISORDER
  3. CYMBALTA [Suspect]
     Active Substance: DULOXETINE HYDROCHLORIDE
     Indication: PANIC ATTACK
     Dosage: 30 MG, UNK
     Dates: start: 20090409

REACTIONS (8)
  - Panic attack [Not Recovered/Not Resolved]
  - Sinusitis [Recovering/Resolving]
  - Tachyphrenia [Not Recovered/Not Resolved]
  - Swollen tongue [Recovered/Resolved]
  - Chest pain [Recovered/Resolved]
  - Feeling jittery [Recovering/Resolving]
  - Vomiting [Recovered/Resolved]
  - Tongue biting [Recovered/Resolved]

NARRATIVE: CASE EVENT DATE: 200904
